FAERS Safety Report 9034298 (Version 1)
Quarter: 2013Q1

REPORT INFORMATION
  Report Type: Spontaneous
  Country: US (occurrence: None)
  Receive Date: 20130114
  Receipt Date: 20130114
  Transmission Date: 20140127
  Serious: Yes (Other)
  Sender: FDA-Public Use
  Company Number: FK201300030

PATIENT
  Age: 26 Year
  Sex: Female
  Weight: 53 kg

DRUGS (4)
  1. BUPIVACAINE [Suspect]
     Indication: EPIDURAL ANALGESIA
     Route: 037
  2. LIDOCAINE / EPINEPHRINE [Suspect]
     Route: 037
  3. FENTANYL (FENTANYL) [Suspect]
     Route: 037
  4. RINGER-LACTATE (MANUFACTURER UNKNOWN) (RINGER-LACTATE) (RINGER-LACTATE) [Concomitant]

REACTIONS (5)
  - Bradycardia foetal [None]
  - Uterine atony [None]
  - Premature separation of placenta [None]
  - Caesarean section [None]
  - Exposure during pregnancy [None]
